FAERS Safety Report 8869240 (Version 1)
Quarter: 2012Q4

REPORT INFORMATION
  Report Type: Spontaneous
  Country: US (occurrence: None)
  Receive Date: 20121025
  Receipt Date: 20121025
  Transmission Date: 20130627
  Serious: Yes (Other)
  Sender: FDA-Public Use
  Company Number: None

PATIENT
  Sex: Female
  Weight: 87.54 kg

DRUGS (1)
  1. JANUVIA [Suspect]
     Indication: DIABETES MELLITUS LOSS OF CONTROL
     Dosage: 100 mg once daily po
     Route: 048
     Dates: start: 20120727, end: 20120820

REACTIONS (1)
  - Erythema nodosum [None]
